FAERS Safety Report 21312917 (Version 1)
Quarter: 2022Q3

REPORT INFORMATION
  Report Type: Spontaneous
  Country: US (occurrence: None)
  Receive Date: 20220909
  Receipt Date: 20220909
  Transmission Date: 20221026
  Serious: Yes (Disabling, Other)
  Sender: FDA-Public Use
  Company Number: None

PATIENT
  Age: 43 Year
  Sex: Male
  Weight: 78.75 kg

DRUGS (4)
  1. DOXAZOSIN [Suspect]
     Active Substance: DOXAZOSIN MESYLATE
     Indication: Abdominal pain lower
     Dosage: OTHER QUANTITY : 1 CAPSULE(S);?FREQUENCY : DAILY;?
     Route: 048
  2. DOXAZOSIN [Suspect]
     Active Substance: DOXAZOSIN MESYLATE
     Indication: Pelvic floor dysfunction
  3. PREGABALIN [Concomitant]
     Active Substance: PREGABALIN
  4. CLONAZEPAM [Concomitant]
     Active Substance: CLONAZEPAM

REACTIONS (12)
  - Quality of life decreased [None]
  - Feeling abnormal [None]
  - Feeling hot [None]
  - Perineal pain [None]
  - Pelvic pain [None]
  - Pain [None]
  - Musculoskeletal pain [None]
  - Pain in extremity [None]
  - Penile pain [None]
  - Penis disorder [None]
  - Loss of libido [None]
  - Depression [None]

NARRATIVE: CASE EVENT DATE: 20190715
